FAERS Safety Report 11445720 (Version 1)
Quarter: 2015Q3

REPORT INFORMATION
  Report Type: Spontaneous
  Country: EG (occurrence: EG)
  Receive Date: 20150902
  Receipt Date: 20150902
  Transmission Date: 20151125
  Serious: Yes (Death)
  Sender: FDA-Public Use
  Company Number: EG-NOVOPROD-461067

PATIENT
  Age: 74 Year
  Sex: Female

DRUGS (4)
  1. MIXTARD HUMAN 70/30 [Suspect]
     Active Substance: INSULIN HUMAN
     Indication: PRODUCT USED FOR UNKNOWN INDICATION
     Dosage: UNK (STARTED 20 YEARS AGO)
     Route: 058
  2. MIXTARD HUMAN 70/30 [Suspect]
     Active Substance: INSULIN HUMAN
     Dosage: 100 IU, QD (70IU/MORNING AND 30IU/NIGHT)
     Route: 058
     Dates: end: 20150731
  3. MIXTARD 30 HM PENFILL [Suspect]
     Active Substance: INSULIN HUMAN
     Indication: PRODUCT USED FOR UNKNOWN INDICATION
     Dosage: 100 IU, QD (70IU/MORNING AND 30IU/NIGHT)
     Route: 065
  4. CONCOR [Concomitant]
     Active Substance: BISOPROLOL FUMARATE
     Indication: HYPERTENSION
     Route: 048

REACTIONS (3)
  - Ovarian cancer metastatic [Fatal]
  - Haematoma [Unknown]
  - Diabetes mellitus inadequate control [Unknown]
